FAERS Safety Report 25513111 (Version 1)
Quarter: 2025Q3

REPORT INFORMATION
  Report Type: Spontaneous
  Country: US (occurrence: US)
  Receive Date: 20250703
  Receipt Date: 20250703
  Transmission Date: 20251020
  Serious: No
  Sender: RADIUS PHARM
  Company Number: US-RADIUS HEALTH INC.-2024US005323

PATIENT
  Sex: Female

DRUGS (1)
  1. TYMLOS [Suspect]
     Active Substance: ABALOPARATIDE
     Indication: Senile osteoporosis
     Route: 058

REACTIONS (11)
  - Product quality issue [Unknown]
  - Feeling abnormal [Unknown]
  - Injection site reaction [Unknown]
  - Fatigue [Unknown]
  - Mass [Unknown]
  - Dizziness [Recovering/Resolving]
  - Injection site bruising [Unknown]
  - Injection site pain [Unknown]
  - Ankle fracture [Unknown]
  - Spinal fracture [Unknown]
  - Drug ineffective [Unknown]
